FAERS Safety Report 8922699 (Version 1)
Quarter: 2012Q4

REPORT INFORMATION
  Report Type: Spontaneous
  Country: CO (occurrence: None)
  Receive Date: 20121109
  Receipt Date: 20121109
  Transmission Date: 20130627
  Serious: Yes (Hospitalization)
  Sender: FDA-Public Use
  Company Number: 2012S1000526

PATIENT
  Age: 64 Year
  Sex: Male

DRUGS (3)
  1. CUBICIN [Suspect]
     Indication: STAPHYLOCOCCAL INFECTION
     Route: 042
     Dates: start: 20120515, end: 20120531
  2. GENTAMICIN [Concomitant]
  3. VANCOMYCIN [Concomitant]

REACTIONS (4)
  - Sepsis [None]
  - Drug ineffective [None]
  - Treatment failure [None]
  - Pathogen resistance [None]
